FAERS Safety Report 16279967 (Version 1)
Quarter: 2019Q2

REPORT INFORMATION
  Report Type: Spontaneous
  Country: US (occurrence: US)
  Receive Date: 20190507
  Receipt Date: 20190507
  Transmission Date: 20190711
  Serious: Yes (Congenital Anomaly, Other)
  Sender: FDA-Public Use
  Company Number: US-AMGEN-USASP2019070486

PATIENT

DRUGS (1)
  1. FILGRASTIM [Suspect]
     Active Substance: FILGRASTIM
     Indication: EXPOSURE DURING PREGNANCY
     Dosage: UNK UNK, QD
     Route: 064

REACTIONS (3)
  - Congenital anomaly [Unknown]
  - Premature baby [Unknown]
  - Low birth weight baby [Unknown]
